FAERS Safety Report 11062682 (Version 1)
Quarter: 2015Q2

REPORT INFORMATION
  Report Type: Spontaneous
  Country: US (occurrence: US)
  Receive Date: 20150424
  Receipt Date: 20150424
  Transmission Date: 20150821
  Serious: No
  Sender: FDA-Public Use
  Company Number: US-ALKERMES INC.-ALK-2014-002925

PATIENT

DRUGS (1)
  1. VIVITROL [Suspect]
     Active Substance: NALTREXONE
     Indication: DRUG DEPENDENCE
     Dosage: 50 MG, QMO
     Route: 030
     Dates: start: 20140330, end: 20140330

REACTIONS (9)
  - Yawning [Recovered/Resolved]
  - Diarrhoea [Recovered/Resolved]
  - Lacrimal disorder [Recovered/Resolved]
  - Abdominal discomfort [Recovered/Resolved]
  - Anhedonia [Recovered/Resolved]
  - Emotional distress [Recovered/Resolved]
  - Swelling face [Recovered/Resolved]
  - Feeling abnormal [Recovering/Resolving]
  - Underdose [Recovered/Resolved]

NARRATIVE: CASE EVENT DATE: 20140330
